FAERS Safety Report 7384519-X (Version None)
Quarter: 2011Q1

REPORT INFORMATION
  Report Type: 
  Country: None (occurrence: None)
  Receive Date: 20110322
  Receipt Date: 20110310
  Transmission Date: 20110831
  Serious: Yes (Other)
  Sender: FDA-Public Use
  Company Number: 029204

PATIENT
  Sex: Female

DRUGS (3)
  1. POLARAMINE [Concomitant]
  2. ANTEBATE [Concomitant]
  3. XYZAL [Suspect]
     Indication: ECZEMA
     Dosage: 5 MG, QD, ORAL
     Route: 048
     Dates: start: 20110302, end: 20110307

REACTIONS (2)
  - ERYTHEMA MULTIFORME [None]
  - DRUG ERUPTION [None]
